FAERS Safety Report 16168232 (Version 1)
Quarter: 2019Q2

REPORT INFORMATION
  Report Type: Spontaneous
  Country: DK (occurrence: DK)
  Receive Date: 20190408
  Receipt Date: 20190408
  Transmission Date: 20190711
  Serious: Yes (Hospitalization)
  Sender: FDA-Public Use
  Company Number: PHHY2019DK078144

PATIENT
  Age: 69 Year
  Sex: Male
  Weight: 106 kg

DRUGS (1)
  1. PRAVASTATIN SANDOZ [Suspect]
     Active Substance: PRAVASTATIN
     Indication: HYPERCHOLESTEROLAEMIA
     Dosage: 40 MG, QD
     Route: 048
     Dates: start: 20181008, end: 20190320

REACTIONS (3)
  - Pancreatitis acute [Recovering/Resolving]
  - Oedematous pancreatitis [Recovering/Resolving]
  - Abdominal pain [Recovering/Resolving]

NARRATIVE: CASE EVENT DATE: 201901
